FAERS Safety Report 9839561 (Version 1)
Quarter: 2014Q1

REPORT INFORMATION
  Report Type: Report from Study
  Country: US (occurrence: US)
  Receive Date: 20140124
  Receipt Date: 20140124
  Transmission Date: 20141002
  Serious: Yes (Other)
  Sender: FDA-Public Use
  Company Number: US-ROCHE-1327315

PATIENT
  Sex: Female

DRUGS (6)
  1. PULMOZYME [Suspect]
     Indication: BRONCHIECTASIS
     Route: 048
     Dates: start: 200705
  2. PULMOZYME [Suspect]
     Indication: TRACHEAL STENOSIS
  3. PULMOZYME [Suspect]
     Indication: HYPOVENTILATION
  4. HYPERTONIC SALINE [Concomitant]
     Dosage: NEBULIZD HYPERTONIC SALINE 7%
     Route: 065
  5. ALBUTEROL [Concomitant]
  6. TOBRAMYCIN INHALATION [Concomitant]
     Route: 065

REACTIONS (3)
  - Obstructive airways disorder [Unknown]
  - Respiratory arrest [Unknown]
  - Hypoventilation [Unknown]
